FAERS Safety Report 22218264 (Version 2)
Quarter: 2023Q2

REPORT INFORMATION
  Report Type: Report from Study
  Country: US (occurrence: US)
  Receive Date: 20230417
  Receipt Date: 20230428
  Transmission Date: 20230721
  Serious: No
  Sender: FDA-Public Use
  Company Number: US-MYLANLABS-2023M1039572

PATIENT
  Age: 51 Year
  Sex: Female

DRUGS (6)
  1. GLATIRAMER ACETATE [Suspect]
     Active Substance: GLATIRAMER ACETATE
     Indication: Relapsing-remitting multiple sclerosis
     Dosage: 40 MILLIGRAM, 3XW
     Route: 058
     Dates: end: 20230407
  2. LEXAPRO [Concomitant]
     Active Substance: ESCITALOPRAM OXALATE
     Dosage: UNK, 20
     Route: 065
  3. VITAMIN B12 [Concomitant]
     Active Substance: CYANOCOBALAMIN
     Dosage: UNK, VITAMIN B12 1000
     Route: 065
  4. BACLOFEN [Concomitant]
     Active Substance: BACLOFEN
     Dosage: UNK
     Route: 065
  5. LYRICA [Concomitant]
     Active Substance: PREGABALIN
     Dosage: UNK
     Route: 065
  6. HYDROCODONE [Concomitant]
     Active Substance: HYDROCODONE
     Dosage: UNK
     Route: 065

REACTIONS (9)
  - Dizziness [Unknown]
  - Flushing [Unknown]
  - Hot flush [Unknown]
  - Nausea [Unknown]
  - Vomiting [Unknown]
  - Head discomfort [Unknown]
  - Dyspnoea [Unknown]
  - Throat tightness [Unknown]
  - Immediate post-injection reaction [Unknown]

NARRATIVE: CASE EVENT DATE: 20230406
